FAERS Safety Report 24458615 (Version 1)
Quarter: 2024Q4

REPORT INFORMATION
  Report Type: Spontaneous
  Country: FR (occurrence: FR)
  Receive Date: 20241018
  Receipt Date: 20241018
  Transmission Date: 20250114
  Serious: Yes (Hospitalization)
  Sender: CLINIGEN
  Company Number: FR-CLINIGEN-FR-CLI-2024-010565

PATIENT

DRUGS (1)
  1. DEXRAZOXANE [Suspect]
     Active Substance: DEXRAZOXANE
     Indication: Extravasation
     Dosage: PERFUSIONS OF SAVENE
     Route: 065
     Dates: start: 20241002, end: 20241004

REACTIONS (1)
  - Administration site extravasation [Unknown]

NARRATIVE: CASE EVENT DATE: 20241004
